FAERS Safety Report 16000538 (Version 1)
Quarter: 2019Q1

REPORT INFORMATION
  Report Type: Spontaneous
  Country: FR (occurrence: FR)
  Receive Date: 20190225
  Receipt Date: 20190225
  Transmission Date: 20190418
  Serious: Yes (Hospitalization, Disabling, Other)
  Sender: FDA-Public Use
  Company Number: FR-MYLANLABS-2019M1015452

PATIENT
  Age: 36 Year
  Sex: Female

DRUGS (1)
  1. QUININE [Suspect]
     Active Substance: QUININE
     Indication: ABORTION
     Dosage: 8 G, UNK
     Dates: start: 19600115, end: 19600117

REACTIONS (17)
  - Tremor [Recovered/Resolved]
  - Arterial disorder [Unknown]
  - Pupillary reflex impaired [Recovered/Resolved]
  - Confusional state [Recovered/Resolved]
  - Mydriasis [Recovered/Resolved]
  - Areflexia [Unknown]
  - Trance [Recovered/Resolved]
  - Intentional overdose [Recovered/Resolved]
  - Overdose [Recovered/Resolved]
  - Delirium [Recovered/Resolved]
  - Intentional product use issue [Unknown]
  - Mental status changes [Recovered/Resolved]
  - Retinal oedema [Unknown]
  - Amaurosis [Recovering/Resolving]
  - Pain in extremity [Unknown]
  - Hyperaesthesia [Unknown]
  - Agitation [Recovered/Resolved]

NARRATIVE: CASE EVENT DATE: 196001
